FAERS Safety Report 25951587 (Version 1)
Quarter: 2025Q4

REPORT INFORMATION
  Report Type: Spontaneous
  Country: JP (occurrence: JP)
  Receive Date: 20251023
  Receipt Date: 20251023
  Transmission Date: 20260118
  Serious: Yes (Hospitalization, Other)
  Sender: MERCK SHARP & DOHME LLC
  Company Number: JP-009507513-2298626

PATIENT
  Age: 60 Year
  Sex: Female
  Weight: 44 kg

DRUGS (12)
  1. KEYTRUDA [Suspect]
     Active Substance: PEMBROLIZUMAB
     Indication: Breast cancer recurrent
     Route: 041
     Dates: start: 20241209, end: 20250106
  2. CARBOPLATIN [Concomitant]
     Active Substance: CARBOPLATIN
     Indication: Breast cancer recurrent
  3. CARBOPLATIN [Concomitant]
     Active Substance: CARBOPLATIN
     Indication: Breast cancer recurrent
     Dosage: 6TH COURSE
     Dates: start: 202501, end: 202501
  4. GEMCITABINE [Concomitant]
     Active Substance: GEMCITABINE
     Indication: Breast cancer recurrent
  5. GEMCITABINE [Concomitant]
     Active Substance: GEMCITABINE
     Indication: Breast cancer recurrent
     Dosage: 6TH COURSE
     Dates: start: 202501, end: 202501
  6. Rebamipide tablet 100mg [EMEC] [Concomitant]
     Route: 048
  7. Loxoprofen 60mg [Concomitant]
     Route: 048
  8. Miya BM Granules [Concomitant]
     Route: 048
  9. Loperamide hydrochloride Cap 1mg [Concomitant]
     Route: 048
  10. Codeine phosphate powder 1% [Concomitant]
     Route: 048
  11. Shakuyakukanzoto extract granules [Concomitant]
     Route: 048
  12. Oxycodone extended-release tablet 5mg NX [Concomitant]
     Route: 048

REACTIONS (3)
  - Hypokalaemia [Recovered/Resolved]
  - Immune-mediated enterocolitis [Recovered/Resolved]
  - Blood creatine phosphokinase increased [Recovered/Resolved]

NARRATIVE: CASE EVENT DATE: 20250212
